FAERS Safety Report 16001086 (Version 1)
Quarter: 2019Q1

REPORT INFORMATION
  Report Type: Spontaneous
  Country: US (occurrence: US)
  Receive Date: 20190225
  Receipt Date: 20190225
  Transmission Date: 20190418
  Serious: No
  Sender: FDA-Public Use
  Company Number: US-INCYTE CORPORATION-2019IN001418

PATIENT

DRUGS (1)
  1. JAKAFI [Suspect]
     Active Substance: RUXOLITINIB
     Indication: NEOPLASM MALIGNANT
     Dosage: 5 MG, BID
     Route: 048
     Dates: start: 20181129

REACTIONS (4)
  - Peripheral swelling [Unknown]
  - Product use issue [Unknown]
  - Off label use [Unknown]
  - Weight increased [Unknown]

NARRATIVE: CASE EVENT DATE: 20181129
